FAERS Safety Report 18517668 (Version 1)
Quarter: 2020Q4

REPORT INFORMATION
  Report Type: Spontaneous
  Country: US (occurrence: US)
  Receive Date: 20201118
  Receipt Date: 20201118
  Transmission Date: 20210114
  Serious: No
  Sender: FDA-Public Use
  Company Number: US-REDHILL BIOPHARMA-2020RDH04091

PATIENT
  Age: 35 Year
  Sex: Female
  Weight: 102.04 kg

DRUGS (2)
  1. TALICIA [Suspect]
     Active Substance: AMOXICILLIN\OMEPRAZOLE MAGNESIUM\RIFABUTIN
     Indication: HELICOBACTER INFECTION
     Dosage: UNK, 3X/DAY (EVERY 8 HOURS)
     Route: 048
     Dates: start: 20201006, end: 20201020
  2. HYDROCHLOROTHIAZIDE. [Concomitant]
     Active Substance: HYDROCHLOROTHIAZIDE

REACTIONS (1)
  - Libido increased [Unknown]

NARRATIVE: CASE EVENT DATE: 202010
